FAERS Safety Report 9352543 (Version 1)
Quarter: 2013Q2

REPORT INFORMATION
  Report Type: Spontaneous
  Country: US (occurrence: US)
  Receive Date: 20130618
  Receipt Date: 20130618
  Transmission Date: 20140414
  Serious: No
  Sender: FDA-Public Use
  Company Number: US-009507513-1306USA006374

PATIENT
  Sex: Male

DRUGS (1)
  1. LOTRIMIN AF LIQUID SPRAY [Suspect]
     Indication: TINEA PEDIS
     Dosage: UNK, UNKNOWN
     Route: 061

REACTIONS (4)
  - Application site pruritus [Unknown]
  - Application site erythema [Unknown]
  - Application site swelling [Unknown]
  - Blister [Not Recovered/Not Resolved]
